FAERS Safety Report 4411538-5 (Version None)
Quarter: 2004Q3

REPORT INFORMATION
  Report Type: 
  Country: None (occurrence: None)
  Receive Date: 20040730
  Receipt Date: 20030704
  Transmission Date: 20050211
  Serious: Yes (Death, Life-Threatening, Hospitalization)
  Sender: FDA-Public Use
  Company Number: BR-ROCHE-341719

PATIENT
  Age: 33 Year
  Sex: Male
  Weight: 88 kg

DRUGS (23)
  1. MYCOPHENOLATE MOFETIL [Suspect]
     Route: 048
     Dates: start: 20030509, end: 20030515
  2. MYCOPHENOLATE MOFETIL [Suspect]
     Route: 048
     Dates: start: 20030516, end: 20030520
  3. MYCOPHENOLATE MOFETIL [Suspect]
     Route: 048
     Dates: start: 20030521, end: 20030629
  4. MYCOPHENOLATE MOFETIL [Suspect]
     Route: 048
     Dates: start: 20030630, end: 20030630
  5. MYCOPHENOLATE MOFETIL [Suspect]
     Route: 048
     Dates: start: 20030701, end: 20030701
  6. MYCOPHENOLATE MOFETIL [Suspect]
     Route: 048
     Dates: start: 20030702, end: 20030716
  7. CYCLOSPORINE [Suspect]
     Route: 048
     Dates: start: 20030509, end: 20030510
  8. CYCLOSPORINE [Suspect]
     Route: 048
     Dates: start: 20030511
  9. CYCLOSPORINE [Suspect]
     Route: 048
     Dates: start: 20030513
  10. CYCLOSPORINE [Suspect]
     Route: 048
     Dates: start: 20030613, end: 20030716
  11. PREDNISONE [Suspect]
     Route: 048
     Dates: start: 20030512, end: 20030527
  12. PREDNISONE [Suspect]
     Route: 048
     Dates: start: 20030528, end: 20030610
  13. PREDNISONE [Suspect]
     Route: 048
     Dates: start: 20030611
  14. PREDNISONE [Suspect]
     Route: 048
     Dates: start: 20030716
  15. PREDNISONE [Suspect]
     Route: 048
     Dates: start: 20030725, end: 20030728
  16. METHYLPREDNISOLONE [Concomitant]
     Route: 042
     Dates: start: 20030613, end: 20030618
  17. OMEPRAZOLE [Concomitant]
     Route: 048
     Dates: start: 20030510
  18. SMZ-TMP [Concomitant]
     Route: 048
     Dates: start: 20030514
  19. CIPROFLOXACIN [Concomitant]
     Route: 048
     Dates: start: 20030625, end: 20030630
  20. CEFEPIME [Concomitant]
     Route: 042
     Dates: start: 20030630, end: 20030716
  21. PROPRANOLOL [Concomitant]
     Route: 048
     Dates: start: 20030512
  22. HYDRALAZINE [Concomitant]
     Route: 048
     Dates: start: 20030512, end: 20030708
  23. FUROSEMIDE [Concomitant]
     Route: 048
     Dates: start: 20030530, end: 20030701

REACTIONS (8)
  - ANGIONEUROTIC OEDEMA [None]
  - CHOLECYSTITIS [None]
  - CYTOMEGALOVIRUS INFECTION [None]
  - HERNIA [None]
  - PANCYTOPENIA [None]
  - POSTOPERATIVE INFECTION [None]
  - RESPIRATORY FAILURE [None]
  - SEPSIS [None]
